FAERS Safety Report 9231841 (Version 1)
Quarter: 2013Q2

REPORT INFORMATION
  Report Type: Spontaneous
  Country: US (occurrence: US)
  Receive Date: 20130415
  Receipt Date: 20130415
  Transmission Date: 20140414
  Serious: No
  Sender: FDA-Public Use
  Company Number: US-PFIZER INC-2013117656

PATIENT
  Age: 56 Year
  Sex: Male
  Weight: 117 kg

DRUGS (2)
  1. LYRICA [Suspect]
     Indication: NEURALGIA
     Dosage: 75 MG, 2X/DAY
     Dates: start: 201303
  2. LYRICA [Suspect]
     Indication: SCIATICA

REACTIONS (1)
  - Headache [Recovered/Resolved]
